FAERS Safety Report 9234840 (Version 1)
Quarter: 2013Q2

REPORT INFORMATION
  Report Type: Spontaneous
  Country: US (occurrence: US)
  Receive Date: 20130416
  Receipt Date: 20130416
  Transmission Date: 20140414
  Serious: No
  Sender: FDA-Public Use
  Company Number: US-ASTRAZENECA-2013SE19054

PATIENT
  Age: 77 Year
  Sex: Female
  Weight: 81.6 kg

DRUGS (1)
  1. SYMBICORT [Suspect]
     Indication: CHRONIC OBSTRUCTIVE PULMONARY DISEASE
     Dosage: 1 PUFF 2 TIMES A DAY
     Route: 055

REACTIONS (3)
  - Dental caries [Unknown]
  - Tooth loss [Unknown]
  - Off label use [Unknown]
